FAERS Safety Report 25463436 (Version 1)
Quarter: 2025Q2

REPORT INFORMATION
  Report Type: Spontaneous
  Country: CZ (occurrence: CZ)
  Receive Date: 20250620
  Receipt Date: 20250620
  Transmission Date: 20250716
  Serious: Yes (Other)
  Sender: ASTELLAS
  Company Number: CZ-ASTELLAS-2025-AER-032603

PATIENT
  Age: 68 Year
  Sex: Male

DRUGS (1)
  1. PADCEV [Suspect]
     Active Substance: ENFORTUMAB VEDOTIN-EJFV
     Indication: Transitional cell carcinoma metastatic
     Route: 065
     Dates: start: 20240702

REACTIONS (8)
  - Ocular toxicity [Unknown]
  - Neuropathy peripheral [Unknown]
  - Rash [Unknown]
  - Glucose tolerance impaired [Unknown]
  - Dry eye [Unknown]
  - Lacrimation increased [Unknown]
  - Eye irritation [Unknown]
  - Photophobia [Unknown]
